FAERS Safety Report 7232320-X (Version None)
Quarter: 2011Q1

REPORT INFORMATION
  Report Type: 
  Country: None (occurrence: None)
  Receive Date: 20110106
  Receipt Date: 20101221
  Transmission Date: 20110831
  Serious: Yes (Hospitalization)
  Sender: FDA-Public Use
  Company Number: 2010005071

PATIENT
  Age: 69 Year
  Sex: Male

DRUGS (4)
  1. SORAFENIB (TABLET) [Suspect]
     Indication: HEPATIC NEOPLASM MALIGNANT
     Dosage: (400 MG, BID), ORAL
     Route: 048
     Dates: start: 20100222, end: 20100315
  2. ERLOTINIB (ERLOTINIB) (TABLET) (ERLOTINIB) [Suspect]
     Indication: HEPATIC NEOPLASM MALIGNANT
     Dosage: (150 MG,QD), ORAL
     Route: 048
     Dates: start: 20100222, end: 20100315
  3. LOPERAMIDE [Concomitant]
  4. FONDAPARINUX SODUM [Concomitant]

REACTIONS (1)
  - HAEMOTHORAX [None]
